FAERS Safety Report 5202024-3 (Version None)
Quarter: 2007Q1

REPORT INFORMATION
  Report Type: 
  Country: None (occurrence: None)
  Receive Date: 20070109
  Receipt Date: 20070102
  Transmission Date: 20070707
  Serious: Yes (Other)
  Sender: FDA-Public Use
  Company Number: US-JNJFOC-20060905511

PATIENT
  Age: 15 Year
  Sex: Male
  Weight: 67.13 kg

DRUGS (1)
  1. RISPERDAL [Suspect]
     Indication: DRUG USE FOR UNKNOWN INDICATION

REACTIONS (3)
  - BLOOD PROLACTIN INCREASED [None]
  - BREAST MASS [None]
  - GYNAECOMASTIA [None]
